FAERS Safety Report 16842069 (Version 1)
Quarter: 2019Q3

REPORT INFORMATION
  Report Type: Spontaneous
  Country: US (occurrence: US)
  Receive Date: 20190923
  Receipt Date: 20190923
  Transmission Date: 20191005
  Serious: Yes (Hospitalization, Other)
  Sender: FDA-Public Use
  Company Number: US-ASTRAZENECA-2019SF33771

PATIENT
  Age: 73 Year
  Sex: Male
  Weight: 78.9 kg

DRUGS (3)
  1. SPIRIVA [Concomitant]
     Active Substance: TIOTROPIUM BROMIDE MONOHYDRATE
  2. PROAIR HFA [Concomitant]
     Active Substance: ALBUTEROL SULFATE
  3. SYMBICORT [Suspect]
     Active Substance: BUDESONIDE\FORMOTEROL FUMARATE DIHYDRATE
     Indication: CHRONIC OBSTRUCTIVE PULMONARY DISEASE
     Dosage: 80/4.5 UG INHALATIONS TWO PUFFS TWICE DAILY
     Route: 055
     Dates: start: 2014

REACTIONS (5)
  - Pneumonia [Unknown]
  - Device issue [Unknown]
  - Influenza [Unknown]
  - Chronic obstructive pulmonary disease [Unknown]
  - Pulmonary mass [Unknown]

NARRATIVE: CASE EVENT DATE: 2014
